FAERS Safety Report 5662098-2 (Version None)
Quarter: 2008Q1

REPORT INFORMATION
  Report Type: 
  Country: None (occurrence: None)
  Receive Date: 20080229
  Receipt Date: 20080218
  Transmission Date: 20080703
  Serious: Yes (Death)
  Sender: FDA-Public Use
  Company Number: B0509551A

PATIENT
  Sex: Male

DRUGS (5)
  1. DIGOXIN [Suspect]
     Indication: CARDIAC FAILURE
     Dosage: ORAL
     Route: 048
  2. DIURETIC [Concomitant]
  3. ACE INHIBITOR [Concomitant]
  4. DOPAMINE HCL [Concomitant]
  5. METOLAZONE [Concomitant]

REACTIONS (6)
  - AMYLOIDOSIS [None]
  - ATRIAL FIBRILLATION [None]
  - BRADYCARDIA [None]
  - CARDIAC ARREST [None]
  - ELECTROMECHANICAL DISSOCIATION [None]
  - HYPOTENSION [None]
